FAERS Safety Report 8999924 (Version 5)
Quarter: 2013Q1

REPORT INFORMATION
  Report Type: Spontaneous
  Country: GB (occurrence: GB)
  Receive Date: 20130102
  Receipt Date: 20130311
  Transmission Date: 20140127
  Serious: Yes (Hospitalization, Disabling)
  Sender: FDA-Public Use
  Company Number: GB-PFIZER INC-2012330715

PATIENT
  Age: 71 Year
  Sex: Female
  Weight: 56 kg

DRUGS (8)
  1. METRONIDAZOLE [Suspect]
     Indication: SKIN ULCER
     Dosage: 400 MG, UNK
     Route: 048
     Dates: start: 20121019
  2. METRONIDAZOLE [Suspect]
     Dosage: 200 MG, UNK
     Route: 048
     Dates: start: 20121022
  3. CALCICHEW [Suspect]
  4. GABAPENTIN [Concomitant]
     Indication: SCIATIC NERVE INJURY
     Dosage: 300 MG, 3X/DAY
     Route: 048
     Dates: start: 2007
  5. GABAPENTIN [Concomitant]
     Dosage: 300 MG, 4X/DAY
     Route: 048
  6. INDAPAMIDE [Concomitant]
  7. ATROVENT [Concomitant]
  8. CITALOPRAM [Concomitant]

REACTIONS (13)
  - Paraesthesia [Not Recovered/Not Resolved]
  - Hypoaesthesia [Not Recovered/Not Resolved]
  - Hypoaesthesia [Not Recovered/Not Resolved]
  - Head discomfort [Not Recovered/Not Resolved]
  - Hypertension [Not Recovered/Not Resolved]
  - Musculoskeletal disorder [Not Recovered/Not Resolved]
  - Hypoaesthesia [Not Recovered/Not Resolved]
  - Hearing impaired [Not Recovered/Not Resolved]
  - Pain in extremity [Not Recovered/Not Resolved]
  - Feeling abnormal [Not Recovered/Not Resolved]
  - Drug ineffective [Not Recovered/Not Resolved]
  - Peripheral coldness [Not Recovered/Not Resolved]
  - Heart rate increased [Not Recovered/Not Resolved]
